FAERS Safety Report 9050192 (Version 1)
Quarter: 2013Q1

REPORT INFORMATION
  Report Type: Spontaneous
  Country: US (occurrence: US)
  Receive Date: 20130204
  Receipt Date: 20130204
  Transmission Date: 20140127
  Serious: No
  Sender: FDA-Public Use
  Company Number: US-AMGEN-USASP2013006734

PATIENT
  Age: 62 Year
  Sex: Female

DRUGS (1)
  1. ENBREL [Suspect]
     Indication: ANKYLOSING SPONDYLITIS
     Dosage: 50 MG, QWK
     Dates: start: 20061001

REACTIONS (4)
  - Back pain [Not Recovered/Not Resolved]
  - Herpes zoster [Recovered/Resolved]
  - Vulvovaginal mycotic infection [Recovered/Resolved]
  - Infection [Unknown]
